FAERS Safety Report 10672597 (Version 3)
Quarter: 2015Q1

REPORT INFORMATION
  Report Type: Report from Study
  Country: KR (occurrence: KR)
  Receive Date: 20141223
  Receipt Date: 20150109
  Transmission Date: 20150720
  Serious: Yes (Death, Hospitalization)
  Sender: FDA-Public Use
  Company Number: KR-GLAXOSMITHKLINE-KR2014GSK038766

PATIENT
  Age: 55 Year
  Sex: Male
  Weight: 68.1 kg

DRUGS (5)
  1. ERDOS [Concomitant]
     Indication: NASOPHARYNGITIS
     Dosage: 300 MG, TID
     Route: 048
     Dates: start: 20141122
  2. MUTERAN [Concomitant]
     Indication: NASOPHARYNGITIS
     Dosage: 200 MG, TID
     Dates: start: 20141103
  3. PAZOPANIB [Suspect]
     Active Substance: PAZOPANIB
     Indication: SARCOMA
     Dosage: 800 MG, 1D
     Route: 048
     Dates: start: 20141208
  4. MEGACE [Concomitant]
     Active Substance: MEGESTROL ACETATE
     Indication: DECREASED APPETITE
     Dosage: 20 MG, BID
     Route: 048
     Dates: start: 20141124
  5. GASMOTIN [Concomitant]
     Active Substance: MOSAPRIDE CITRATE
     Dosage: 5 MG, TID
     Dates: start: 20141217

REACTIONS (3)
  - Dehydration [Fatal]
  - Hypophagia [Fatal]
  - Hypotension [Recovered/Resolved]

NARRATIVE: CASE EVENT DATE: 20141210
